FAERS Safety Report 22981674 (Version 4)
Quarter: 2023Q4

REPORT INFORMATION
  Report Type: Report from Study
  Country: US (occurrence: US)
  Receive Date: 20230925
  Receipt Date: 20231215
  Transmission Date: 20240110
  Serious: Yes (Other)
  Sender: FDA-Public Use
  Company Number: US-ARGENX-2023-ARGX-US003135

PATIENT

DRUGS (1)
  1. VYVGART [Suspect]
     Active Substance: EFGARTIGIMOD ALFA-FCAB
     Indication: Product used for unknown indication
     Dosage: UNK
     Route: 042
     Dates: start: 20230830

REACTIONS (8)
  - Macular degeneration [Unknown]
  - Asthenia [Unknown]
  - Fatigue [Unknown]
  - Vision blurred [Unknown]
  - Pain in extremity [Unknown]
  - Joint stiffness [Unknown]
  - Herpes zoster [Unknown]
  - COVID-19 [Unknown]

NARRATIVE: CASE EVENT DATE: 20230830
